FAERS Safety Report 7005026-X (Version None)
Quarter: 2010Q3

REPORT INFORMATION
  Report Type: 
  Country: None (occurrence: None)
  Receive Date: 20100921
  Receipt Date: 20100915
  Transmission Date: 20110219
  Serious: Yes (Other)
  Sender: FDA-Public Use
  Company Number: BR-SANOFI-AVENTIS-2010SA046264

PATIENT
  Sex: Female
  Weight: 68 kg

DRUGS (9)
  1. LANTUS [Suspect]
     Route: 058
  2. OPTIPEN [Suspect]
  3. METFORMIN [Concomitant]
     Route: 048
  4. GINKGO BILOBA [Concomitant]
     Route: 048
  5. CITALOR [Concomitant]
     Route: 048
  6. CALCIUM PHOSPHATE [Concomitant]
     Route: 048
  7. CALCIFEROL [Concomitant]
  8. BONIVA [Concomitant]
     Route: 048
  9. BROMAZEPAM [Concomitant]
     Indication: ANXIETY
     Route: 048
     Dates: start: 20090101

REACTIONS (3)
  - BREAST CANCER [None]
  - HYPERTENSION [None]
  - INJECTION SITE PAIN [None]
